FAERS Safety Report 14138323 (Version 1)
Quarter: 2017Q4

REPORT INFORMATION
  Report Type: Spontaneous
  Country: US (occurrence: US)
  Receive Date: 20171027
  Receipt Date: 20171027
  Transmission Date: 20180321
  Serious: Yes (Other)
  Sender: FDA-Public Use
  Company Number: US-BRACCO-2017US04168

PATIENT

DRUGS (1)
  1. LUMASON [Suspect]
     Active Substance: SULFUR HEXAFLUORIDE
     Indication: ECHOCARDIOGRAM
     Dosage: 3 ML, SINGLE
     Route: 042
     Dates: start: 20170907, end: 20170907

REACTIONS (4)
  - Pruritus [Recovered/Resolved]
  - Blood pressure decreased [Recovered/Resolved]
  - Throat tightness [Recovered/Resolved]
  - Feeling hot [Recovered/Resolved]

NARRATIVE: CASE EVENT DATE: 20170907
